FAERS Safety Report 5314993-1 (Version None)
Quarter: 2007Q2

REPORT INFORMATION
  Report Type: 
  Country: None (occurrence: None)
  Receive Date: 20070502
  Receipt Date: 20070423
  Transmission Date: 20071010
  Serious: Yes (Hospitalization, Other)
  Sender: FDA-Public Use
  Company Number: US-ABBOTT-07P-163-0365857-00

PATIENT
  Sex: Female
  Weight: 68.1 kg

DRUGS (2)
  1. HUMIRA [Suspect]
     Indication: RHEUMATOID ARTHRITIS
     Route: 058
     Dates: start: 20040701, end: 20050401
  2. HUMIRA [Suspect]
     Route: 058
     Dates: start: 20060801

REACTIONS (4)
  - CARDIAC INFECTION [None]
  - IMPAIRED HEALING [None]
  - SPINAL COLUMN STENOSIS [None]
  - STAPHYLOCOCCAL INFECTION [None]
